FAERS Safety Report 13178892 (Version 3)
Quarter: 2017Q1

REPORT INFORMATION
  Report Type: Spontaneous
  Country: US (occurrence: US)
  Receive Date: 20170202
  Receipt Date: 20170310
  Transmission Date: 20170428
  Serious: No
  Sender: FDA-Public Use
  Company Number: US-PFIZER INC-2017040795

PATIENT
  Age: 64 Year
  Sex: Male
  Weight: 105 kg

DRUGS (14)
  1. ZITHROMAX [Concomitant]
     Active Substance: AZITHROMYCIN DIHYDRATE
     Dosage: 250 MG, UNK
  2. PROAIR HFA [Concomitant]
     Active Substance: ALBUTEROL SULFATE
     Indication: WHEEZING
     Dosage: 2 DF, AS NEEDED (INHALE 2 PUFFS AS DIRECTED EVERY 6 (SIX) HOURS AS NEEDED ) (90 MCG/ACTUATION )
     Route: 045
  3. TOPROL XL [Concomitant]
     Active Substance: METOPROLOL SUCCINATE
     Dosage: UNK, DAILY (TAKE 1 1/2 TABLETS BY MOUTH EVERY DAY)
     Route: 048
  4. SPIRIVA [Concomitant]
     Active Substance: TIOTROPIUM BROMIDE MONOHYDRATE
     Dosage: 18 UG, DAILY (18 MCG INHALATION DEVICE: INHALE 18 MCG AS DIRECTED DAILY)
     Route: 045
  5. MEDROL [Concomitant]
     Active Substance: METHYLPREDNISOLONE
     Dosage: 4 MG, DAILY
     Route: 048
  6. SUTENT [Suspect]
     Active Substance: SUNITINIB MALATE
     Indication: METASTATIC RENAL CELL CARCINOMA
     Dosage: 50 MG, CYCLIC (MG, 28 DAY SUPPLY) (4 WKS FOLLOWED BY 2 WKS OFF THERAPY)
     Route: 048
  7. NORVASC [Concomitant]
     Active Substance: AMLODIPINE BESYLATE
     Dosage: 5 MG, 1X/DAY (TAKE 1 TABLET BY MOUTH DAILY PATIENT TAKING DIFFERENTLY: TAKE 1 TABLET BY MOUTH EVENI)
     Route: 048
  8. SYMBICORT [Concomitant]
     Active Substance: BUDESONIDE\FORMOTEROL FUMARATE DIHYDRATE
     Dosage: 2 DF, AS NEEDED (160-4.5 MCG/ACTUATION HFA INHALER) (INHALE 2 PUFFS AS DIRECTED 2 (TWO) TIMES DAILY)
     Route: 045
  9. ECOTRIN [Concomitant]
     Active Substance: ASPIRIN
     Dosage: 81 MG, DAILY
     Route: 048
  10. LOTENSIN [Concomitant]
     Active Substance: BENAZEPRIL HYDROCHLORIDE
     Dosage: 40 MG, DAILY
     Route: 048
  11. ALBUTEROL. [Concomitant]
     Active Substance: ALBUTEROL
     Indication: WHEEZING
     Dosage: 3 ML, AS NEEDED (TAKE 3 ML BY NEBULIZATION EVERY 6 (SIX) HOURS AS NEEDED) (2.5 MG/3 ML (0.083 %) )
     Route: 045
  12. VITAMIN D3 [Concomitant]
     Active Substance: CHOLECALCIFEROL
     Dosage: 2000 IU, DAILY
     Route: 048
  13. SINGULAIR [Concomitant]
     Active Substance: MONTELUKAST SODIUM
     Dosage: 10 MG, DAILY
     Route: 048
  14. PRILOSEC [Concomitant]
     Active Substance: OMEPRAZOLE MAGNESIUM
     Dosage: 10 MG, DAILY
     Route: 048

REACTIONS (3)
  - Upper respiratory tract infection [Unknown]
  - Rhinorrhoea [Unknown]
  - Headache [Unknown]
